FAERS Safety Report 23275843 (Version 1)
Quarter: 2023Q4

REPORT INFORMATION
  Report Type: Spontaneous
  Country: JP (occurrence: JP)
  Receive Date: 20231208
  Receipt Date: 20231208
  Transmission Date: 20240110
  Serious: Yes (Other)
  Sender: FDA-Public Use
  Company Number: JP-ASTELLAS-2022JP009562

PATIENT
  Age: 78 Year
  Sex: Male

DRUGS (3)
  1. PADCEV [Suspect]
     Active Substance: ENFORTUMAB VEDOTIN-EJFV
     Indication: Ureteric cancer
     Dosage: 1.0 MG/KG/DAY, UNKNOWN FREQ.
     Route: 041
     Dates: start: 20220412, end: 202206
  2. PADCEV [Suspect]
     Active Substance: ENFORTUMAB VEDOTIN-EJFV
     Dosage: 1.0 MG/KG/DAY, UNKNOWN FREQ.
     Route: 041
     Dates: start: 20220719, end: 202211
  3. LEVOTHYROXINE [Concomitant]
     Active Substance: LEVOTHYROXINE
     Indication: Hypothyroidism
     Dosage: UNK UNK, UNKNOWN FREQ.
     Route: 065
     Dates: start: 202112

REACTIONS (7)
  - Neoplasm progression [Unknown]
  - Pneumonia [Recovered/Resolved]
  - Neuropathy peripheral [Unknown]
  - KL-6 increased [Unknown]
  - Pain [Unknown]
  - Taste disorder [Unknown]
  - Alopecia [Unknown]

NARRATIVE: CASE EVENT DATE: 20220401
